FAERS Safety Report 13561422 (Version 2)
Quarter: 2017Q2

REPORT INFORMATION
  Report Type: Spontaneous
  Country: FR (occurrence: FR)
  Receive Date: 20170518
  Receipt Date: 20170523
  Transmission Date: 20170830
  Serious: Yes (Other)
  Sender: FDA-Public Use
  Company Number: FR-TEVA-768611ROM

PATIENT
  Age: 9 Year
  Sex: Male

DRUGS (2)
  1. ACITRETIN. [Suspect]
     Active Substance: ACITRETIN
     Indication: PSORIASIS
     Dosage: 0.5MG/KG/DAY
     Route: 065
  2. CLOBETASOL [Interacting]
     Active Substance: CLOBETASOL
     Indication: PSORIASIS
     Dosage: 500 MG/G; 10G EVERY TWO DAYS
     Route: 061

REACTIONS (2)
  - Cushing^s syndrome [Recovered/Resolved]
  - Drug interaction [Recovered/Resolved]
